FAERS Safety Report 5391387-4 (Version None)
Quarter: 2007Q3

REPORT INFORMATION
  Report Type: 
  Country: None (occurrence: None)
  Receive Date: 20070719
  Receipt Date: 20070713
  Transmission Date: 20080115
  Serious: Yes (Hospitalization)
  Sender: FDA-Public Use
  Company Number: IT-BRISTOL-MYERS SQUIBB COMPANY-13844105

PATIENT
  Age: 50 Year
  Sex: Male

DRUGS (5)
  1. AMPICILLIN [Suspect]
  2. SULFAMETHOXAZOLE AND TRIMETHOPRIM [Suspect]
  3. STEROIDS [Suspect]
  4. LINEZOLID [Suspect]
  5. MEROPENEM [Suspect]

REACTIONS (9)
  - ASTHENIA [None]
  - BONE MARROW FAILURE [None]
  - CEREBELLAR SYNDROME [None]
  - DRUG INEFFECTIVE [None]
  - DYSPHAGIA [None]
  - HYPERGLYCAEMIA [None]
  - NYSTAGMUS [None]
  - PUPILS UNEQUAL [None]
  - TORTICOLLIS [None]
